FAERS Safety Report 8103182-3 (Version None)
Quarter: 2012Q1

REPORT INFORMATION
  Report Type: 
  Country: None (occurrence: None)
  Receive Date: 20120201
  Receipt Date: 20120127
  Transmission Date: 20120608
  Serious: Yes (Death)
  Sender: FDA-Public Use
  Company Number: US-SANOFI-AVENTIS-2012SA006621

PATIENT

DRUGS (2)
  1. CISPLATIN [Suspect]
     Dosage: ON DAY 1; OVER 2 HOURS
     Route: 065
  2. DOCETAXEL [Suspect]
     Dosage: ON DAY 1; OVER 1 HOUR
     Route: 042

REACTIONS (1)
  - DEATH [None]
